FAERS Safety Report 4659985-0 (Version None)
Quarter: 2005Q2

REPORT INFORMATION
  Report Type: 
  Country: None (occurrence: None)
  Receive Date: 20050503
  Receipt Date: 20050111
  Transmission Date: 20051028
  Serious: Yes (Hospitalization)
  Sender: FDA-Public Use
  Company Number: PHEH2005US00813

PATIENT
  Age: 94 Year
  Sex: Male
  Weight: 104 kg

DRUGS (2)
  1. LAMISIL AT ATHLETE'S FOOT CREAM (NCH) (TERBINAFINE HYDROCHLORIDE) CREA [Suspect]
     Indication: TINEA PEDIS
     Dosage: ONCE/SINGLE, TOPICAL
     Route: 061
     Dates: start: 20041230
  2. IRON [Concomitant]

REACTIONS (7)
  - ERYTHEMA [None]
  - HAEMATOMA [None]
  - HYPERSENSITIVITY [None]
  - OEDEMA PERIPHERAL [None]
  - ONYCHOMADESIS [None]
  - PRURITUS [None]
  - SKIN BURNING SENSATION [None]
